FAERS Safety Report 13924174 (Version 2)
Quarter: 2017Q4

REPORT INFORMATION
  Report Type: Spontaneous
  Country: US (occurrence: US)
  Receive Date: 20170831
  Receipt Date: 20171025
  Transmission Date: 20180320
  Serious: Yes (Hospitalization)
  Sender: FDA-Public Use
  Company Number: US-009507513-1708USA011313

PATIENT
  Sex: Male

DRUGS (1)
  1. BRIDION [Suspect]
     Active Substance: SUGAMMADEX
     Indication: NEUROMUSCULAR BLOCKADE REVERSAL
     Dosage: ONE DOSE; STRENGTH: 100 MG/ML
     Route: 042
     Dates: start: 201704

REACTIONS (1)
  - Vasospasm [Unknown]

NARRATIVE: CASE EVENT DATE: 201704
